FAERS Safety Report 20696313 (Version 1)
Quarter: 2022Q2

REPORT INFORMATION
  Report Type: Spontaneous
  Country: US (occurrence: US)
  Receive Date: 20220411
  Receipt Date: 20220411
  Transmission Date: 20220721
  Serious: No
  Sender: FDA-Public Use
  Company Number: US-PFIZER INC-202101182883

PATIENT
  Age: 59 Year
  Sex: Male
  Weight: 72.562 kg

DRUGS (5)
  1. INLYTA [Suspect]
     Active Substance: AXITINIB
     Dosage: 5 MG, 2X/DAY
     Route: 048
     Dates: start: 202101
  2. ZOFRAN [Concomitant]
     Active Substance: ONDANSETRON HYDROCHLORIDE
     Dosage: UNK
  3. POTASSIUM [Concomitant]
     Active Substance: POTASSIUM
     Dosage: UNK
  4. ACETAMINOPHEN\HYDROCODONE [Concomitant]
     Active Substance: ACETAMINOPHEN\HYDROCODONE
     Dosage: UNK
  5. HYDROCHLOROTHIAZIDE [Concomitant]
     Active Substance: HYDROCHLOROTHIAZIDE
     Dosage: UNK

REACTIONS (8)
  - Hypotension [Unknown]
  - Decreased appetite [Unknown]
  - Dysgeusia [Unknown]
  - Parosmia [Unknown]
  - Nausea [Unknown]
  - Weight decreased [Unknown]
  - Joint swelling [Unknown]
  - Peripheral swelling [Unknown]
